FAERS Safety Report 18248995 (Version 1)
Quarter: 2020Q3

REPORT INFORMATION
  Report Type: Spontaneous
  Country: US (occurrence: US)
  Receive Date: 20200909
  Receipt Date: 20200909
  Transmission Date: 20201103
  Serious: No
  Sender: FDA-Public Use
  Company Number: US-PERRIGO-20US011393

PATIENT
  Age: 73 Year
  Sex: Male
  Weight: 113.38 kg

DRUGS (3)
  1. ALBUTEROL SULFATE. [Suspect]
     Active Substance: ALBUTEROL SULFATE
     Dosage: UNKNOWN, EVERY 4 HOURS, PRN
     Route: 055
     Dates: start: 20200803
  2. ALPRAZOLAM. [Concomitant]
     Active Substance: ALPRAZOLAM
     Indication: ANXIETY
     Dosage: UNKNOWN, PRN
     Route: 065
     Dates: start: 202007
  3. ALBUTEROL SULFATE. [Suspect]
     Active Substance: ALBUTEROL SULFATE
     Indication: DYSPNOEA
     Dosage: 90 MCG, EVERY 4 HOURS, PRN
     Route: 055
     Dates: start: 20200720, end: 20200802

REACTIONS (3)
  - Device delivery system issue [Unknown]
  - Therapeutic product effect decreased [Unknown]
  - Underdose [Not Recovered/Not Resolved]

NARRATIVE: CASE EVENT DATE: 20200803
